FAERS Safety Report 10866133 (Version 1)
Quarter: 2015Q1

REPORT INFORMATION
  Report Type: Spontaneous
  Country: US (occurrence: None)
  Receive Date: 20150219
  Receipt Date: 20150219
  Transmission Date: 20150721
  Serious: No
  Sender: FDA-Public Use
  Company Number: None

PATIENT
  Age: 67 Year
  Sex: Male

DRUGS (7)
  1. ASPARAGUS EXTRACT [Concomitant]
  2. MINOXIDIL 10 MG TABS [Suspect]
     Active Substance: MINOXIDIL
     Indication: HYPERTENSION
     Dosage: 1 TABLET DAILY 1 DAILY BY MOUTH
     Route: 048
     Dates: start: 20150114, end: 20150119
  3. LOVASTATIN. [Concomitant]
     Active Substance: LOVASTATIN
  4. TORSEMIDE. [Concomitant]
     Active Substance: TORSEMIDE
  5. CARVEDILOL. [Concomitant]
     Active Substance: CARVEDILOL
  6. AMLODIPINE [Concomitant]
     Active Substance: AMLODIPINE BESYLATE
  7. VITAMIN D3 [Concomitant]
     Active Substance: CHOLECALCIFEROL

REACTIONS (2)
  - Peripheral swelling [None]
  - Swelling face [None]

NARRATIVE: CASE EVENT DATE: 20141117
